FAERS Safety Report 8426212-8 (Version None)
Quarter: 2012Q2

REPORT INFORMATION
  Report Type: 
  Country: None (occurrence: None)
  Receive Date: 20120611
  Receipt Date: 20120528
  Transmission Date: 20120825
  Serious: Yes (Hospitalization)
  Sender: FDA-Public Use
  Company Number: ES-UCBSA-058724

PATIENT
  Age: 64 Year
  Sex: Male

DRUGS (1)
  1. OMEPRAZOLE [Suspect]
     Indication: GASTROOESOPHAGEAL REFLUX DISEASE
     Dosage: TOTAL DAILY DOSE: 20 MG
     Route: 048
     Dates: start: 20010101, end: 20110101

REACTIONS (8)
  - ASTHENIA [None]
  - HYPOPARATHYROIDISM [None]
  - HYPOMAGNESAEMIA [None]
  - DIARRHOEA [None]
  - FATIGUE [None]
  - MUSCULAR WEAKNESS [None]
  - TETANY [None]
  - PARATHYROID DISORDER [None]
